FAERS Safety Report 10333254 (Version 2)
Quarter: 2015Q3

REPORT INFORMATION
  Report Type: Report from Study
  Country: US (occurrence: US)
  Receive Date: 20140722
  Receipt Date: 20150820
  Transmission Date: 20151125
  Serious: No
  Sender: FDA-Public Use
  Company Number: US-GILEAD-2014-0109627

PATIENT
  Age: 55 Year
  Sex: Female
  Weight: 73.47 kg

DRUGS (9)
  1. AMBRISENTAN [Suspect]
     Active Substance: AMBRISENTAN
     Indication: COR PULMONALE
  2. CARVEDILOL. [Concomitant]
     Active Substance: CARVEDILOL
  3. AMBRISENTAN [Suspect]
     Active Substance: AMBRISENTAN
     Indication: PULMONARY SARCOIDOSIS
     Dosage: 5 MG, UNK
     Route: 065
     Dates: start: 20140624
  4. AMBRISENTAN [Suspect]
     Active Substance: AMBRISENTAN
     Indication: RIGHT VENTRICULAR FAILURE
  5. FUROSEMIDE. [Concomitant]
     Active Substance: FUROSEMIDE
  6. GLIPIZIDE. [Concomitant]
     Active Substance: GLIPIZIDE
  7. AMBRISENTAN [Suspect]
     Active Substance: AMBRISENTAN
     Indication: PULMONARY HYPERTENSION
  8. SPIRONOLACTONE. [Concomitant]
     Active Substance: SPIRONOLACTONE
  9. POTASSIUM CL [Concomitant]
     Active Substance: POTASSIUM CHLORIDE

REACTIONS (3)
  - Rash erythematous [Recovered/Resolved]
  - Hot flush [Recovered/Resolved]
  - Rash papular [Recovered/Resolved]

NARRATIVE: CASE EVENT DATE: 20140723
